FAERS Safety Report 9709057 (Version 2)
Quarter: 2014Q4

REPORT INFORMATION
  Report Type: Spontaneous
  Country: GB (occurrence: GB)
  Receive Date: 20131125
  Receipt Date: 20141110
  Transmission Date: 20150529
  Serious: Yes (Life-Threatening, Hospitalization, Disabling, Other)
  Sender: FDA-Public Use
  Company Number: GB-WATSON-2013-21573

PATIENT
  Age: 55 Year
  Sex: Male
  Weight: 64 kg

DRUGS (6)
  1. DIAZEPAM (UNKNOWN) [Suspect]
     Active Substance: DIAZEPAM
     Indication: ROAD TRAFFIC ACCIDENT
     Dosage: UNK
     Route: 048
  2. TRANXENE T-TAB [Interacting]
     Active Substance: CLORAZEPATE DIPOTASSIUM
     Indication: ROAD TRAFFIC ACCIDENT
     Dosage: UNK
     Route: 048
  3. HALCION [Interacting]
     Active Substance: TRIAZOLAM
     Indication: ROAD TRAFFIC ACCIDENT
     Dosage: UNK
     Route: 048
  4. LIBRIUM [Interacting]
     Active Substance: CHLORDIAZEPOXIDE HYDROCHLORIDE
     Indication: ROAD TRAFFIC ACCIDENT
     Dosage: UNK
     Route: 048
  5. ATIVAN [Interacting]
     Active Substance: LORAZEPAM
     Indication: ROAD TRAFFIC ACCIDENT
     Dosage: UNK; HIGH DOSES UNDER DOCTOR^S APPROVAL
     Route: 048
  6. VALIUM [Interacting]
     Active Substance: DIAZEPAM
     Indication: ROAD TRAFFIC ACCIDENT
     Dosage: UNK
     Route: 065

REACTIONS (24)
  - Brain injury [Unknown]
  - Bladder disorder [Not Recovered/Not Resolved]
  - Poisoning [Unknown]
  - Nervous system disorder [Unknown]
  - Vomiting [Not Recovered/Not Resolved]
  - Emotional disorder [Not Recovered/Not Resolved]
  - Feeling abnormal [Not Recovered/Not Resolved]
  - Medication error [Unknown]
  - Panic disorder [Not Recovered/Not Resolved]
  - Mental disorder [Not Recovered/Not Resolved]
  - Quality of life decreased [None]
  - Post-traumatic stress disorder [Not Recovered/Not Resolved]
  - Fear [Not Recovered/Not Resolved]
  - Pain [Not Recovered/Not Resolved]
  - Asthenia [Unknown]
  - Agoraphobia [Not Recovered/Not Resolved]
  - Drug interaction [Unknown]
  - Gait disturbance [None]
  - Phobia [Not Recovered/Not Resolved]
  - Functional gastrointestinal disorder [Not Recovered/Not Resolved]
  - Suicidal ideation [Unknown]
  - Lethargy [Unknown]
  - Migraine [Not Recovered/Not Resolved]
  - Depression [Unknown]

NARRATIVE: CASE EVENT DATE: 19980705
